FAERS Safety Report 23696867 (Version 5)
Quarter: 2024Q2

REPORT INFORMATION
  Report Type: Spontaneous
  Country: GB (occurrence: GB)
  Receive Date: 20240402
  Receipt Date: 20240607
  Transmission Date: 20240716
  Serious: Yes (Other)
  Sender: FDA-Public Use
  Company Number: GB-PFIZER INC-202400070359

PATIENT
  Age: 7 Year
  Sex: Female

DRUGS (1)
  1. NGENLA [Suspect]
     Active Substance: SOMATROGON-GHLA
     Indication: Hyperpituitarism
     Dosage: 15 MG, WEEKLY
     Route: 058
     Dates: start: 20231127, end: 202405

REACTIONS (4)
  - Device delivery system issue [Unknown]
  - Device mechanical issue [Unknown]
  - Incorrect dose administered by device [Unknown]
  - Injection site mass [Unknown]

NARRATIVE: CASE EVENT DATE: 20240201
